FAERS Safety Report 8917609 (Version 2)
Quarter: 2012Q4

REPORT INFORMATION
  Report Type: 
  Country: AT (occurrence: AT)
  Receive Date: 20121120
  Receipt Date: 20121206
  Transmission Date: 20130627
  Serious: Yes (Hospitalization, Other)
  Sender: FDA-Public Use
  Company Number: AT-JNJFOC-20121102542

PATIENT
  Age: 84 Year
  Sex: Female
  Weight: 98 kg

DRUGS (15)
  1. XARELTO [Suspect]
     Indication: CEREBROVASCULAR ACCIDENT PROPHYLAXIS
     Dosage: Expiration date: 15-JAN-14
     Route: 048
     Dates: start: 20120918, end: 20120920
  2. XARELTO [Suspect]
     Indication: ATRIAL FIBRILLATION
     Dosage: Expiration date: 15-JAN-14
     Route: 048
     Dates: start: 20120918, end: 20120920
  3. MEXALEN [Concomitant]
     Route: 065
  4. LOSARTAN [Concomitant]
     Route: 065
  5. CONCOR COR [Concomitant]
     Route: 065
  6. LASIX [Concomitant]
     Route: 065
  7. PANTOLOC [Concomitant]
     Route: 065
  8. POTASSIUM CANRENOATE [Concomitant]
     Route: 065
  9. MAGNOSOLV [Concomitant]
     Route: 065
  10. TRITTICO [Concomitant]
     Route: 065
  11. SPIRIVA [Concomitant]
     Route: 065
  12. BERODUAL [Concomitant]
     Route: 065
  13. LOVENOX [Concomitant]
     Route: 065
  14. DIHYDROCODEINE [Concomitant]
     Route: 065
  15. CONCOR PLUS [Concomitant]
     Route: 065

REACTIONS (2)
  - Intestinal haemorrhage [Recovered/Resolved]
  - Duodenal ulcer haemorrhage [Recovered/Resolved]
